FAERS Safety Report 13139820 (Version 1)
Quarter: 2017Q1

REPORT INFORMATION
  Report Type: Spontaneous
  Country: US (occurrence: US)
  Receive Date: 20170123
  Receipt Date: 20170123
  Transmission Date: 20170428
  Serious: Yes (Hospitalization)
  Sender: FDA-Public Use
  Company Number: US-BAXTER-2017BAX003277

PATIENT
  Age: 20 Year
  Sex: Male

DRUGS (18)
  1. PHENYTOIN. [Concomitant]
     Active Substance: PHENYTOIN
     Indication: SEIZURE
     Route: 065
  2. DEXAMETHASONE. [Concomitant]
     Active Substance: DEXAMETHASONE
     Indication: COCCIDIOIDOMYCOSIS
  3. VORICONAZOLE. [Concomitant]
     Active Substance: VORICONAZOLE
     Indication: SPINAL CORD ABSCESS
  4. FLUCONAZOLE INJECTION, USP [Suspect]
     Active Substance: FLUCONAZOLE
     Indication: INFECTION
     Route: 065
  5. LIPOSOMAL AMPHOTERICIN B [Concomitant]
     Active Substance: AMPHOTERICIN B
     Indication: INFECTION
     Route: 065
  6. DEXAMETHASONE. [Concomitant]
     Active Substance: DEXAMETHASONE
     Indication: INFECTION
     Dosage: TAPER DOSE
     Route: 065
  7. DEXAMETHASONE. [Concomitant]
     Active Substance: DEXAMETHASONE
     Indication: SPINAL CORD ABSCESS
     Route: 065
  8. FLUCONAZOLE INJECTION, USP [Suspect]
     Active Substance: FLUCONAZOLE
     Indication: COCCIDIOIDOMYCOSIS
     Route: 065
  9. LIPOSOMAL AMPHOTERICIN B [Concomitant]
     Active Substance: AMPHOTERICIN B
     Indication: SPINAL CORD ABSCESS
     Dosage: DOSE INCREASED (DAY44)
     Route: 065
  10. VORICONAZOLE. [Concomitant]
     Active Substance: VORICONAZOLE
     Indication: INFECTION
     Route: 065
  11. LEVETIRACETAM. [Concomitant]
     Active Substance: LEVETIRACETAM
     Route: 065
  12. VORICONAZOLE. [Concomitant]
     Active Substance: VORICONAZOLE
     Indication: COCCIDIOIDOMYCOSIS
  13. FLUCONAZOLE INJECTION, USP [Suspect]
     Active Substance: FLUCONAZOLE
     Indication: SPINAL CORD ABSCESS
     Route: 065
  14. FLUCONAZOLE INJECTION, USP [Suspect]
     Active Substance: FLUCONAZOLE
     Route: 065
  15. LEVETIRACETAM. [Concomitant]
     Active Substance: LEVETIRACETAM
     Indication: SEIZURE
     Route: 065
  16. FLUCONAZOLE INJECTION, USP [Suspect]
     Active Substance: FLUCONAZOLE
     Indication: MENINGITIS COCCIDIOIDES
     Route: 065
  17. LIPOSOMAL AMPHOTERICIN B [Concomitant]
     Active Substance: AMPHOTERICIN B
     Indication: COCCIDIOIDOMYCOSIS
     Route: 065
  18. VORICONAZOLE. [Concomitant]
     Active Substance: VORICONAZOLE
     Indication: EVIDENCE BASED TREATMENT
     Route: 065

REACTIONS (1)
  - Therapy non-responder [Recovering/Resolving]
